FAERS Safety Report 6714560-9 (Version None)
Quarter: 2010Q2

REPORT INFORMATION
  Report Type: 
  Country: None (occurrence: None)
  Receive Date: 20100506
  Receipt Date: 20100423
  Transmission Date: 20101027
  Serious: Yes (Life-Threatening, Hospitalization)
  Sender: FDA-Public Use
  Company Number: DE-MYLANLABS-2009S1004359

PATIENT
  Age: 77 Year
  Sex: Female

DRUGS (8)
  1. GLIBENCLAMIDE [Suspect]
     Indication: TYPE 2 DIABETES MELLITUS
     Route: 048
     Dates: start: 20000101, end: 20080727
  2. METFORMIN [Interacting]
     Indication: TYPE 2 DIABETES MELLITUS
     Route: 048
     Dates: start: 19950101
  3. FURORESE [Interacting]
     Indication: RENAL IMPAIRMENT
     Route: 048
     Dates: start: 20020101, end: 20080808
  4. XIPAMIDE [Interacting]
     Indication: HYPERTENSION
     Route: 048
     Dates: start: 20000101
  5. ASPIRIN [Concomitant]
     Indication: ISCHAEMIC HEART DISEASE PROPHYLAXIS
     Route: 048
     Dates: start: 20020101
  6. PANTOZOL [Concomitant]
     Indication: PROPHYLAXIS AGAINST GASTROINTESTINAL ULCER
     Route: 048
     Dates: start: 20060101
  7. METOPROLOL [Concomitant]
     Indication: HYPERTENSION
     Route: 048
  8. LISINOPRIL [Concomitant]
     Indication: HYPERTENSION
     Route: 048

REACTIONS (3)
  - DRUG INTERACTION [None]
  - HYPOGLYCAEMIA [None]
  - RENAL FAILURE ACUTE [None]
